FAERS Safety Report 4956198-X (Version None)
Quarter: 2006Q1

REPORT INFORMATION
  Report Type: 
  Country: None (occurrence: None)
  Receive Date: 20060329
  Receipt Date: 20060321
  Transmission Date: 20060701
  Serious: Yes (Death, Hospitalization)
  Sender: FDA-Public Use
  Company Number: US-ABBOTT-06P-163-0328597-00

PATIENT
  Sex: Male

DRUGS (9)
  1. DEPAKOTE [Suspect]
     Indication: BIPOLAR DISORDER
     Route: 048
     Dates: start: 20050706, end: 20060320
  2. DEPAKOTE [Suspect]
     Indication: SCHIZOAFFECTIVE DISORDER
     Route: 048
     Dates: start: 20040908, end: 20050101
  3. DEPAKOTE [Suspect]
     Route: 048
     Dates: start: 20050101, end: 20050501
  4. DEPAKOTE [Suspect]
     Route: 048
     Dates: start: 20050501, end: 20050614
  5. DEPAKOTE [Suspect]
     Route: 048
     Dates: start: 20050615, end: 20050706
  6. QUETIAPINE [Concomitant]
     Indication: BIPOLAR DISORDER
     Route: 048
  7. CLONAZEPAM [Concomitant]
     Indication: DRUG USE FOR UNKNOWN INDICATION
     Route: 048
  8. RISPERIDONE [Concomitant]
     Indication: BIPOLAR DISORDER
     Route: 048
  9. VENLAFAXINE HCL [Concomitant]
     Indication: BIPOLAR DISORDER
     Route: 048

REACTIONS (4)
  - ANHEDONIA [None]
  - DEATH [None]
  - DISTURBANCE IN ATTENTION [None]
  - HALLUCINATION, AUDITORY [None]
